FAERS Safety Report 7361054-6 (Version None)
Quarter: 2011Q1

REPORT INFORMATION
  Report Type: 
  Country: None (occurrence: None)
  Receive Date: 20110318
  Receipt Date: 20110114
  Transmission Date: 20110831
  Serious: No
  Sender: FDA-Public Use
  Company Number: US-BAYER-2011-005549

PATIENT
  Sex: Male
  Weight: 100 kg

DRUGS (3)
  1. CAPTOPRIL [Concomitant]
  2. ALEVE (CAPLET) [Suspect]
     Indication: ARTHRALGIA
     Dosage: 440/220/440 - BOTTLE COUNT 20S
     Route: 048
  3. ASPIRIN [Concomitant]

REACTIONS (1)
  - ARTHRALGIA [None]
